FAERS Safety Report 8908834 (Version 2)
Quarter: 2012Q4

REPORT INFORMATION
  Report Type: 
  Country: US (occurrence: US)
  Receive Date: 20121114
  Receipt Date: 20121126
  Transmission Date: 20130627
  Serious: Yes (Other)
  Sender: FDA-Public Use
  Company Number: US-ASTRAZENECA-2012SE84347

PATIENT
  Age: 45 Year
  Sex: Male
  Weight: 137.4 kg

DRUGS (20)
  1. SYMBICORT [Suspect]
     Indication: ASTHMA
     Dosage: TWO PUFFS TWO TIMES DAILY
     Route: 055
     Dates: start: 20100503
  2. WARFARIN [Concomitant]
     Indication: ANTICOAGULANT THERAPY
     Route: 048
     Dates: start: 20100503
  3. DILTIAZEM [Concomitant]
     Indication: HYPERTENSION
     Route: 048
     Dates: start: 201206
  4. PANTOPRAZOLE [Concomitant]
     Indication: CARDIAC FAILURE CONGESTIVE
     Route: 048
     Dates: start: 201206
  5. PREDNISONE [Concomitant]
     Indication: CHRONIC OBSTRUCTIVE PULMONARY DISEASE
     Route: 048
     Dates: start: 2002
  6. POTASSIUM CHLORIDE [Concomitant]
     Indication: HYPERTENSION
     Route: 048
     Dates: start: 201206
  7. FUROSIMIDE [Concomitant]
     Indication: HYPERTENSION
     Dosage: 100 MG AM AND 50 MG PM
     Route: 048
     Dates: start: 201206
  8. GABAPENTIN [Concomitant]
     Indication: NEUROPATHY PERIPHERAL
     Route: 048
     Dates: start: 200805
  9. OXYCODONE [Concomitant]
     Indication: BACK PAIN
     Route: 048
     Dates: start: 200806
  10. OXYCONTIN [Concomitant]
     Indication: PAIN
     Route: 048
     Dates: start: 200806
  11. OXYCONTIN [Concomitant]
     Indication: NEUROPATHY PERIPHERAL
     Route: 048
     Dates: start: 200806
  12. FENTANYL [Concomitant]
     Indication: PAIN
     Dates: start: 200806
  13. NOVOLOG [Concomitant]
     Indication: DIABETES MELLITUS
     Dosage: 90 UNITS AC
     Route: 058
     Dates: start: 2002
  14. NOVOLOG REGULAR [Concomitant]
     Indication: DIABETES MELLITUS
     Dosage: SLIDING SCALE
     Route: 058
     Dates: start: 2002
  15. SPIRIVA [Concomitant]
     Indication: CHRONIC OBSTRUCTIVE PULMONARY DISEASE
     Dates: start: 2002
  16. ALPRAZOLAM [Concomitant]
     Indication: ANXIETY
     Dosage: 0.5 MG HALF TO ONE TABLET THREE TIMES DAILY AS NEEDED
  17. COMBIVENT [Concomitant]
     Indication: CHRONIC OBSTRUCTIVE PULMONARY DISEASE
     Dosage: TWO PUFFS EVERY FOUR HOURS AS NEEDED
  18. TESTOSTERONE [Concomitant]
     Dosage: 10 MI CYP IN 200 MG
  19. AMASTRZOLE [Concomitant]
     Dosage: 0.25 WITH EACH INJECTION
  20. HOME OXYGEN [Concomitant]
     Dosage: HOME OXYGEN AT 3 LITERS

REACTIONS (5)
  - Cardiac failure congestive [Unknown]
  - Blood testosterone decreased [Unknown]
  - Thrombosis [Unknown]
  - Dyspnoea [Unknown]
  - Back pain [Unknown]
